FAERS Safety Report 7680214-8 (Version None)
Quarter: 2011Q3

REPORT INFORMATION
  Report Type: 
  Country: None (occurrence: None)
  Receive Date: 20110812
  Receipt Date: 20110809
  Transmission Date: 20111222
  Serious: Yes (Death, Hospitalization)
  Sender: FDA-Public Use
  Company Number: BR-ROCHE-795954

PATIENT
  Sex: Female
  Weight: 65 kg

DRUGS (2)
  1. TEMSIROLIMUS [Suspect]
     Indication: RENAL CELL CARCINOMA
     Dosage: FRQUENCY: ONCE EVERY OTHER WEEK
     Route: 042
     Dates: start: 20100924, end: 20110807
  2. BEVACIZUMAB [Suspect]
     Indication: RENAL CELL CARCINOMA
     Route: 042
     Dates: start: 20100924, end: 20110807

REACTIONS (1)
  - RENAL FAILURE [None]
